FAERS Safety Report 17197158 (Version 1)
Quarter: 2019Q4

REPORT INFORMATION
  Report Type: Spontaneous
  Country: JP (occurrence: JP)
  Receive Date: 20191224
  Receipt Date: 20191224
  Transmission Date: 20200122
  Serious: Yes (Death)
  Sender: FDA-Public Use
  Company Number: JP-ALLERGAN-1952229US

PATIENT
  Sex: Male

DRUGS (1)
  1. ASENAPINE MALEATE - BP [Suspect]
     Active Substance: ASENAPINE MALEATE
     Indication: DEMENTIA
     Dosage: 5 MG, BID
     Route: 060
     Dates: start: 20191017, end: 20191024

REACTIONS (2)
  - Death [Fatal]
  - Off label use [Fatal]
